FAERS Safety Report 6142362-3 (Version None)
Quarter: 2009Q2

REPORT INFORMATION
  Report Type: 
  Country: None (occurrence: None)
  Receive Date: 20090403
  Receipt Date: 20090325
  Transmission Date: 20091009
  Serious: Yes (Hospitalization)
  Sender: FDA-Public Use
  Company Number: GB-PFIZER INC-2009188706

PATIENT

DRUGS (4)
  1. SOMATROPIN [Suspect]
     Indication: OFF LABEL USE
  2. SOMATROPIN [Suspect]
     Indication: MUSCLE BUILDING THERAPY
  3. WINSTROL [Concomitant]
     Indication: MUSCLE BUILDING THERAPY
  4. TESTOSTERONE PROPIONATE [Concomitant]

REACTIONS (5)
  - DYSPHONIA [None]
  - DYSPNOEA [None]
  - LARYNGEAL OEDEMA [None]
  - LARYNGOCELE [None]
  - STRIDOR [None]
